FAERS Safety Report 6382305-0 (Version None)
Quarter: 2009Q3

REPORT INFORMATION
  Report Type: 
  Country: None (occurrence: None)
  Receive Date: 20090930
  Receipt Date: 20090921
  Transmission Date: 20100115
  Serious: Yes (Hospitalization)
  Sender: FDA-Public Use
  Company Number: BE-ASTRAZENECA-2009SE14764

PATIENT
  Age: 67 Year
  Sex: Female

DRUGS (12)
  1. SEROQUEL [Suspect]
     Route: 048
  2. OMEPRAZOLE [Concomitant]
     Route: 065
     Dates: start: 20090709
  3. TEMESTA [Concomitant]
     Route: 065
     Dates: start: 20090709
  4. AMLOR [Concomitant]
     Route: 065
     Dates: start: 20090709
  5. DAFLON [Concomitant]
     Route: 065
     Dates: start: 20090709
  6. TRADONAL [Concomitant]
     Route: 065
     Dates: start: 20090709
  7. DEPAKENE [Concomitant]
     Route: 065
     Dates: start: 20090709
  8. L-THYRONE [Concomitant]
     Route: 065
     Dates: start: 20090709
  9. STILNOCT [Concomitant]
     Route: 065
     Dates: start: 20090709
  10. SYNTROM [Concomitant]
     Route: 065
     Dates: start: 20090709
  11. DOMINAL [Concomitant]
     Route: 065
     Dates: start: 20090709
  12. INVEGA [Concomitant]
     Route: 065
     Dates: start: 20090709

REACTIONS (3)
  - ABNORMAL BEHAVIOUR [None]
  - AGITATION [None]
  - PLATELET COUNT DECREASED [None]
